FAERS Safety Report 8575334-X (Version None)
Quarter: 2012Q3

REPORT INFORMATION
  Report Type: 
  Country: None (occurrence: None)
  Receive Date: 20120807
  Receipt Date: 20120803
  Transmission Date: 20120928
  Serious: No
  Sender: FDA-Public Use
  Company Number: US-PFIZER INC-2012189468

PATIENT
  Age: 82 Year
  Sex: Male
  Weight: 78.005 kg

DRUGS (7)
  1. LYRICA [Suspect]
     Indication: HERPES ZOSTER
     Dosage: 75 MG, 3X/DAY
  2. LYRICA [Suspect]
     Indication: PAIN
     Dosage: 75 MG, DAILY
     Dates: start: 20120501
  3. INSULIN [Concomitant]
     Indication: DIABETES MELLITUS
     Dosage: 8 IU,DAILY
  4. METFORMIN [Concomitant]
     Indication: DIABETES MELLITUS
     Dosage: 1000 MG, 2X/DAY
  5. GLYBURIDE [Concomitant]
     Indication: DIABETES MELLITUS
     Dosage: 5 MG, DAILY
  6. LYRICA [Suspect]
     Dosage: 75 MG, EVERY THIRD DAY
     Dates: start: 20120101, end: 20120701
  7. LYRICA [Suspect]
     Dosage: 75 MG, EVERY OTHER DAY
     Dates: start: 20120101

REACTIONS (9)
  - LIVER DISORDER [None]
  - GAIT DISTURBANCE [None]
  - EAR DISORDER [None]
  - DRUG INEFFECTIVE [None]
  - EAR CONGESTION [None]
  - RHINORRHOEA [None]
  - EAR DISCOMFORT [None]
  - DIZZINESS [None]
  - UPPER RESPIRATORY TRACT CONGESTION [None]
